FAERS Safety Report 8804938 (Version 2)
Quarter: 2015Q3

REPORT INFORMATION
  Report Type: Report from Study
  Country: US (occurrence: US)
  Receive Date: 20120924
  Receipt Date: 20150701
  Transmission Date: 20151125
  Serious: Yes (Death)
  Sender: FDA-Public Use
  Company Number: US-ROCHE-1126594

PATIENT
  Sex: Female

DRUGS (32)
  1. KYTRIL [Concomitant]
     Active Substance: GRANISETRON HYDROCHLORIDE
     Route: 042
  2. AVINZA [Concomitant]
     Active Substance: MORPHINE SULFATE
     Route: 048
  3. LORAZEPAM. [Concomitant]
     Active Substance: LORAZEPAM
     Route: 065
  4. DYAZIDE [Concomitant]
     Active Substance: HYDROCHLOROTHIAZIDE\TRIAMTERENE
  5. COUMADIN [Concomitant]
     Active Substance: WARFARIN SODIUM
  6. GEMZAR [Concomitant]
     Active Substance: GEMCITABINE HYDROCHLORIDE
     Route: 042
  7. DILAUDID [Concomitant]
     Active Substance: HYDROMORPHONE HYDROCHLORIDE
     Route: 065
  8. ATIVAN [Concomitant]
     Active Substance: LORAZEPAM
     Route: 065
  9. HYDROMORPHONE [Concomitant]
     Active Substance: HYDROMORPHONE
  10. LOVENOX [Concomitant]
     Active Substance: ENOXAPARIN SODIUM
     Route: 058
  11. IBUPROFEN. [Concomitant]
     Active Substance: IBUPROFEN
     Route: 065
  12. AVASTIN [Suspect]
     Active Substance: BEVACIZUMAB
     Indication: LUNG NEOPLASM MALIGNANT
     Route: 042
  13. ARANESP [Concomitant]
     Active Substance: DARBEPOETIN ALFA
     Route: 058
  14. DECADRON [Concomitant]
     Active Substance: DEXAMETHASONE
     Route: 042
  15. SENOKOT [Concomitant]
     Active Substance: SENNOSIDES
  16. DILAUDID [Concomitant]
     Active Substance: HYDROMORPHONE HYDROCHLORIDE
     Route: 065
  17. DEXAMETHASONE. [Concomitant]
     Active Substance: DEXAMETHASONE
     Route: 065
  18. MARINOL (UNITED STATES) [Concomitant]
  19. MELATONIN [Concomitant]
     Active Substance: MELATONIN
  20. PROTONIX (UNITED STATES) [Concomitant]
  21. ZYRTEC [Concomitant]
     Active Substance: CETIRIZINE HYDROCHLORIDE
     Route: 042
  22. NEULASTA [Concomitant]
     Active Substance: PEGFILGRASTIM
     Route: 065
  23. MAXZIDE [Concomitant]
     Active Substance: HYDROCHLOROTHIAZIDE\TRIAMTERENE
  24. CARBOPLATIN. [Concomitant]
     Active Substance: CARBOPLATIN
     Route: 065
  25. POLYETHYLENE GLYCOL [Concomitant]
     Active Substance: POLYETHYLENE GLYCOLS
  26. HYDROCHLOROTHIAZIDE/TRIAMTERENE [Concomitant]
     Active Substance: HYDROCHLOROTHIAZIDE\TRIAMTERENE
     Route: 065
  27. COLACE [Concomitant]
     Active Substance: DOCUSATE SODIUM
  28. XELODA [Suspect]
     Active Substance: CAPECITABINE
     Indication: PRODUCT USED FOR UNKNOWN INDICATION
     Route: 065
  29. BENADRYL [Concomitant]
     Active Substance: DIPHENHYDRAMINE HYDROCHLORIDE
     Route: 065
  30. ZANTAC [Concomitant]
     Active Substance: RANITIDINE HYDROCHLORIDE
     Route: 042
  31. ROCEPHIN [Concomitant]
     Active Substance: CEFTRIAXONE SODIUM
     Route: 065
  32. GLYCERIN. [Concomitant]
     Active Substance: GLYCERIN

REACTIONS (31)
  - Leukocytosis [Unknown]
  - Nausea [Unknown]
  - Emotional distress [Unknown]
  - Pyrexia [Unknown]
  - Thrombosis [Unknown]
  - Muscle spasms [Unknown]
  - Back pain [Unknown]
  - Dizziness [Unknown]
  - Lethargy [Unknown]
  - Depression [Unknown]
  - Upper respiratory tract infection [Unknown]
  - Death [Fatal]
  - Fatigue [Unknown]
  - Feeling abnormal [Unknown]
  - Constipation [Unknown]
  - Chest pain [Unknown]
  - Dyspnoea [Unknown]
  - Chills [Unknown]
  - Abdominal pain [Unknown]
  - Haemorrhoids [Unknown]
  - Disease progression [Unknown]
  - Insomnia [Unknown]
  - Off label use [Unknown]
  - Headache [Unknown]
  - Weight decreased [Unknown]
  - Haemoptysis [Unknown]
  - Malaise [Unknown]
  - Anxiety [Unknown]
  - Bone pain [Unknown]
  - Thrombocytopenia [Unknown]
  - Decreased appetite [Unknown]
